FAERS Safety Report 9528052 (Version 1)
Quarter: 2013Q3

REPORT INFORMATION
  Report Type: Spontaneous
  Country: IN (occurrence: IN)
  Receive Date: 20130917
  Receipt Date: 20130917
  Transmission Date: 20140515
  Serious: Yes (Other)
  Sender: FDA-Public Use
  Company Number: IN-JNJFOC-20130907062

PATIENT
  Sex: 0

DRUGS (1)
  1. TOPIRAMATE [Suspect]
     Indication: INFANTILE SPASMS
     Route: 048

REACTIONS (3)
  - Infantile spasms [Unknown]
  - Drug ineffective [Unknown]
  - Off label use [Unknown]
